FAERS Safety Report 4864844-4 (Version None)
Quarter: 2005Q4

REPORT INFORMATION
  Report Type: 
  Country: None (occurrence: None)
  Receive Date: 20051201
  Receipt Date: 20050710
  Transmission Date: 20060501
  Serious: No
  Sender: FDA-Public Use
  Company Number: 2005PV000300

PATIENT
  Age: 74 Year
  Sex: Male

DRUGS (12)
  1. BYETTA [Suspect]
     Indication: DIABETES MELLITUS NON-INSULIN-DEPENDENT
     Dosage: 5 MCG; BID; SC
     Route: 058
     Dates: start: 20050709
  2. GEMFIBROZIL [Concomitant]
  3. MONTELUKAST [Concomitant]
  4. PLAVIX [Concomitant]
  5. ISOSORBIDE [Concomitant]
  6. LISINOPRIL [Concomitant]
  7. PRAVASTATIN [Concomitant]
  8. AVANDIA [Concomitant]
  9. REGULAR INSULIN [Concomitant]
  10. NPH INSULIN [Concomitant]
  11. REGULAR INSULIN [Concomitant]
  12. FISH OIL [Concomitant]

REACTIONS (6)
  - BALANCE DISORDER [None]
  - BLOOD GLUCOSE INCREASED [None]
  - DIFFICULTY IN WALKING [None]
  - DIZZINESS [None]
  - DYSSTASIA [None]
  - FALL [None]
